FAERS Safety Report 6295239-7 (Version None)
Quarter: 2009Q3

REPORT INFORMATION
  Report Type: 
  Country: None (occurrence: None)
  Receive Date: 20090803
  Receipt Date: 20090722
  Transmission Date: 20100115
  Serious: Yes (Other)
  Sender: FDA-Public Use
  Company Number: US-AVENTIS-200915058US

PATIENT
  Sex: Female
  Weight: 81.36 kg

DRUGS (14)
  1. LANTUS [Suspect]
     Route: 058
     Dates: start: 20090518
  2. GLUMETZA [Concomitant]
  3. OXAZEPAM [Concomitant]
  4. PRANDIN                            /01393601/ [Concomitant]
  5. CRESTOR [Concomitant]
     Dosage: DOSE: 40 MG 1/2 TAB QD
     Route: 048
  6. IMPRAMINE HCL [Concomitant]
  7. FUROSEMIDE [Concomitant]
  8. LABETALOL HCL [Concomitant]
  9. DIOVANE [Concomitant]
     Dosage: DOSE: 160/12.5
  10. VIT D AND E [Concomitant]
     Dosage: DOSE: UNK
     Dates: start: 20080910
  11. ASPIRIN [Concomitant]
  12. HYDRALAZINE HCL [Concomitant]
  13. VITAMIN B-12 [Concomitant]
     Dosage: DOSE: UNK
  14. GLIPIZIDE [Concomitant]

REACTIONS (2)
  - BLOOD PRESSURE INCREASED [None]
  - HEADACHE [None]
